FAERS Safety Report 16288448 (Version 2)
Quarter: 2019Q2

REPORT INFORMATION
  Report Type: Spontaneous
  Country: US (occurrence: US)
  Receive Date: 20190509
  Receipt Date: 20190529
  Transmission Date: 20190711
  Serious: No
  Sender: FDA-Public Use
  Company Number: US-SHIRE-US201914973

PATIENT
  Sex: Female

DRUGS (1)
  1. XIIDRA [Suspect]
     Active Substance: LIFITEGRAST
     Indication: OCULAR ROSACEA
     Dosage: 1 DROP, 2X/DAY:BID, IN EACH EYE
     Route: 047

REACTIONS (2)
  - Off label use [Unknown]
  - Instillation site pain [Recovered/Resolved]
